FAERS Safety Report 24437412 (Version 1)
Quarter: 2024Q4

REPORT INFORMATION
  Report Type: Spontaneous
  Country: US (occurrence: None)
  Receive Date: 20241012
  Receipt Date: 20241012
  Transmission Date: 20250115
  Serious: Yes (Death)
  Sender: Public
  Company Number: None

PATIENT
  Age: 57 Year
  Sex: Female
  Weight: 149.7 kg

DRUGS (3)
  1. CISPLATIN [Suspect]
     Active Substance: CISPLATIN
     Dates: end: 20240709
  2. OLANZAPINE [Concomitant]
     Active Substance: OLANZAPINE
  3. ONDANSETRON [Concomitant]

REACTIONS (6)
  - Failure to thrive [None]
  - Pancytopenia [None]
  - Odynophagia [None]
  - Unresponsive to stimuli [None]
  - Pulseless electrical activity [None]
  - Cardiac arrest [None]

NARRATIVE: CASE EVENT DATE: 20241011
